FAERS Safety Report 13968416 (Version 2)
Quarter: 2017Q3

REPORT INFORMATION
  Report Type: Report from Study
  Country: US (occurrence: US)
  Receive Date: 20170914
  Receipt Date: 20170915
  Transmission Date: 20171128
  Serious: Yes (Hospitalization)
  Sender: FDA-Public Use
  Company Number: US-JNJFOC-20170910585

PATIENT
  Age: 18 Year
  Sex: Female
  Weight: 75.2 kg

DRUGS (6)
  1. UCERIS [Concomitant]
     Active Substance: BUDESONIDE
     Route: 065
  2. FOLIC ACID. [Concomitant]
     Active Substance: FOLIC ACID
     Route: 065
  3. REMICADE [Suspect]
     Active Substance: INFLIXIMAB
     Indication: CROHN^S DISEASE
     Route: 042
     Dates: start: 20110329, end: 20140722
  4. HUMIRA [Concomitant]
     Active Substance: ADALIMUMAB
     Route: 050
     Dates: start: 20170901
  5. HUMIRA [Concomitant]
     Active Substance: ADALIMUMAB
     Route: 050
     Dates: start: 20140906
  6. LEVSIN [Concomitant]
     Active Substance: HYOSCYAMINE SULFATE
     Route: 065

REACTIONS (1)
  - Crohn^s disease [Recovered/Resolved]

NARRATIVE: CASE EVENT DATE: 20170827
